FAERS Safety Report 12337984 (Version 1)
Quarter: 2016Q2

REPORT INFORMATION
  Report Type: Spontaneous
  Country: ES (occurrence: ES)
  Receive Date: 20160505
  Receipt Date: 20160505
  Transmission Date: 20160815
  Serious: Yes (Other)
  Sender: FDA-Public Use
  Company Number: ES-GILEAD-2016-0211308

PATIENT
  Age: 72 Year
  Sex: Female
  Weight: 71.4 kg

DRUGS (8)
  1. HARVONI [Suspect]
     Active Substance: LEDIPASVIR\SOFOSBUVIR
     Indication: PRODUCT USED FOR UNKNOWN INDICATION
     Dosage: 1 DF, QD
     Route: 065
     Dates: start: 20160404
  2. ALENDRONIC ACID [Concomitant]
     Active Substance: ALENDRONIC ACID
  3. AMLODIPINE [Concomitant]
     Active Substance: AMLODIPINE BESYLATE
  4. PAROXETINE. [Concomitant]
     Active Substance: PAROXETINE
  5. ENALAPRIL [Concomitant]
     Active Substance: ENALAPRIL
  6. MASTICAL [Concomitant]
  7. TROMALYT [Concomitant]
     Active Substance: ASPIRIN
  8. PARIET [Concomitant]
     Active Substance: RABEPRAZOLE SODIUM

REACTIONS (1)
  - Myocardial infarction [Unknown]
